FAERS Safety Report 9171586 (Version 1)
Quarter: 2013Q1

REPORT INFORMATION
  Report Type: Spontaneous
  Country: US (occurrence: None)
  Receive Date: 20130131
  Receipt Date: 20130131
  Transmission Date: 20140127
  Serious: Yes (Hospitalization)
  Sender: FDA-Public Use
  Company Number: 1053087-2013-0001

PATIENT
  Age: 68 Year
  Sex: Female
  Weight: 74.39 kg

DRUGS (2)
  1. CP2D ANTICOAGULANT SOLUTION-HAEMONETICS [Suspect]
     Indication: APHERESIS
     Dosage: 1 UNIT PER PROCEDURE/IV
     Route: 042
     Dates: start: 20130110
  2. AS-3 RED CELL SOLUTION-HAEMONETICS [Suspect]
     Indication: APHERESIS
     Dosage: 1 UNIT PER PROCEDURE/IV
     Route: 042
     Dates: start: 20130110

REACTIONS (4)
  - Device alarm issue [None]
  - Loss of consciousness [None]
  - Vomiting [None]
  - Procedural complication [None]
